FAERS Safety Report 24204767 (Version 1)
Quarter: 2024Q3

REPORT INFORMATION
  Report Type: Spontaneous
  Country: US (occurrence: US)
  Receive Date: 20240813
  Receipt Date: 20240813
  Transmission Date: 20241017
  Serious: Yes (Other)
  Sender: BAYER
  Company Number: US-MLMSERVICE-20240801-PI148778-00106-1

PATIENT
  Age: 71 Year
  Sex: Male

DRUGS (2)
  1. ASPIRIN [Interacting]
     Active Substance: ASPIRIN
     Indication: Antiplatelet therapy
     Dosage: 81 MG
  2. CLOPIDOGREL [Interacting]
     Active Substance: CLOPIDOGREL BISULFATE
     Indication: Antiplatelet therapy

REACTIONS (4)
  - Hyphaema [Recovered/Resolved]
  - Vitreous haemorrhage [Recovered/Resolved]
  - Epistaxis [Recovered/Resolved]
  - Labelled drug-drug interaction issue [None]
